FAERS Safety Report 4873554-9 (Version None)
Quarter: 2005Q4

REPORT INFORMATION
  Report Type: 
  Country: None (occurrence: None)
  Receive Date: 20051201
  Receipt Date: 20050823
  Transmission Date: 20060501
  Serious: No
  Sender: FDA-Public Use
  Company Number: 2005PV001458

PATIENT
  Age: 49 Year
  Sex: Female
  Weight: 81.6475 kg

DRUGS (4)
  1. BYETTA [Suspect]
     Indication: DIABETES MELLITUS NON-INSULIN-DEPENDENT
     Dosage: 5 MCG; BID;SC
     Route: 058
     Dates: start: 20050719, end: 20050819
  2. XANAX [Concomitant]
  3. METFORMIN [Concomitant]
  4. LANTUS [Concomitant]

REACTIONS (3)
  - FEELING JITTERY [None]
  - INSOMNIA [None]
  - NAUSEA [None]
